FAERS Safety Report 11363052 (Version 1)
Quarter: 2015Q3

REPORT INFORMATION
  Report Type: Report from Study
  Country: DK (occurrence: DE)
  Receive Date: 20150810
  Receipt Date: 20150810
  Transmission Date: 20151125
  Serious: Yes (Hospitalization)
  Sender: FDA-Public Use
  Company Number: DE-FRI-1000078855

PATIENT
  Sex: Female

DRUGS (22)
  1. ABILIFY [Interacting]
     Active Substance: ARIPIPRAZOLE
     Dosage: 15 MILLIGRAM
     Route: 048
     Dates: start: 20110118, end: 20110127
  2. SOLIAN [Interacting]
     Active Substance: AMISULPRIDE
     Dosage: 400 MILLIGRAM
     Route: 048
     Dates: start: 20110111, end: 20110117
  3. LORAZEPAM. [Concomitant]
     Active Substance: LORAZEPAM
     Dosage: 0.5 MILLIGRAM
     Route: 065
     Dates: start: 20110118, end: 20110121
  4. CITALOPRAM [Interacting]
     Active Substance: CITALOPRAM HYDROBROMIDE
     Dosage: 20 MILLIGRAM
     Route: 048
     Dates: start: 20101229, end: 20110109
  5. SOLIAN [Interacting]
     Active Substance: AMISULPRIDE
     Indication: PRODUCT USED FOR UNKNOWN INDICATION
     Dosage: 100 MILLIGRAM
     Route: 048
     Dates: start: 20110104, end: 20110110
  6. QUETIAPIN AL [Concomitant]
     Dosage: 100 MILLIGRAM
     Route: 065
     Dates: start: 20110126
  7. CITALOPRAM [Interacting]
     Active Substance: CITALOPRAM HYDROBROMIDE
     Dosage: 40 MILLIGRAM
     Route: 048
     Dates: start: 20110110, end: 20110205
  8. HALDOL [Interacting]
     Active Substance: HALOPERIDOL
     Dosage: 6 MILLIGRAM
     Route: 048
     Dates: start: 20101229, end: 20110104
  9. SOLIAN [Interacting]
     Active Substance: AMISULPRIDE
     Dosage: 200 MILLIGRAM
     Route: 048
     Dates: start: 20110119
  10. ABILIFY [Interacting]
     Active Substance: ARIPIPRAZOLE
     Dosage: 10 MILLIGRAM
     Route: 048
     Dates: start: 20110128, end: 20110204
  11. LORAZEPAM. [Concomitant]
     Active Substance: LORAZEPAM
     Dosage: 1 MILLIGRAM
     Route: 065
     Dates: start: 20110104, end: 20110117
  12. SOLIAN [Interacting]
     Active Substance: AMISULPRIDE
     Dosage: 300 MILLIGRAM
     Route: 048
     Dates: start: 20110118
  13. QUETIAPIN AL [Concomitant]
     Indication: PRODUCT USED FOR UNKNOWN INDICATION
     Dosage: 50 MILLIGRAM
     Route: 065
     Dates: start: 20110125
  14. SOLIAN [Interacting]
     Active Substance: AMISULPRIDE
     Dosage: 100 MILLIGRAM
     Route: 048
     Dates: start: 20110122, end: 20110125
  15. ABILIFY [Interacting]
     Active Substance: ARIPIPRAZOLE
     Indication: PRODUCT USED FOR UNKNOWN INDICATION
     Dosage: 5 MILLIGRAM
     Route: 048
     Dates: start: 20110112
  16. LORAZEPAM. [Concomitant]
     Active Substance: LORAZEPAM
     Indication: PRODUCT USED FOR UNKNOWN INDICATION
     Dosage: 2 MILLIGRAM
     Route: 065
     Dates: start: 20101226
  17. CITALOPRAM [Suspect]
     Active Substance: CITALOPRAM HYDROBROMIDE
     Indication: PRODUCT USED FOR UNKNOWN INDICATION
     Dosage: 10 MILLIGRAM
     Route: 048
     Dates: start: 20101226
  18. HALDOL [Interacting]
     Active Substance: HALOPERIDOL
     Indication: PRODUCT USED FOR UNKNOWN INDICATION
     Dosage: 6 MILLIGRAM
     Route: 048
     Dates: start: 20101226
  19. LORAZEPAM. [Concomitant]
     Active Substance: LORAZEPAM
     Dosage: 1.5 MILLIGRAM
     Route: 065
     Dates: start: 20101229
  20. BIPERIDEN [Concomitant]
     Active Substance: BIPERIDEN
     Indication: PRODUCT USED FOR UNKNOWN INDICATION
     Dosage: 4 MILLIGRAM
     Route: 048
     Dates: start: 20110104, end: 20110131
  21. ABILIFY [Interacting]
     Active Substance: ARIPIPRAZOLE
     Dosage: 10 MILLIGRAM
     Route: 048
     Dates: start: 20110115
  22. ABILIFY [Interacting]
     Active Substance: ARIPIPRAZOLE
     Dosage: 5 MILLIGRAM
     Route: 048
     Dates: start: 20110205

REACTIONS (3)
  - Extrapyramidal disorder [Unknown]
  - Drug interaction [Unknown]
  - Tremor [Recovering/Resolving]

NARRATIVE: CASE EVENT DATE: 20110104
